FAERS Safety Report 10229479 (Version 2)
Quarter: 2014Q2

REPORT INFORMATION
  Report Type: Spontaneous
  Country: AU (occurrence: AU)
  Receive Date: 20140611
  Receipt Date: 20140611
  Transmission Date: 20141212
  Serious: Yes (Hospitalization)
  Sender: FDA-Public Use
  Company Number: AU-INDICUS PHARMA-000261

PATIENT
  Age: 68 Year
  Sex: Female

DRUGS (8)
  1. METFORMIN [Suspect]
     Indication: TYPE 2 DIABETES MELLITUS
  2. SODIUM PICOSULFATE [Suspect]
     Indication: BOWEL PREPARATION
  3. INDAPAMIDE/INDAPAMIDE HEMIHYDRATE [Suspect]
     Indication: HYPERTENSION
  4. AMLODIPINE [Suspect]
     Indication: HYPERTENSION
  5. ISOPHANE INSULIN [Suspect]
     Indication: TYPE 2 DIABETES MELLITUS
     Dosage: 50 UNITS NOCTE
  6. GLICLAZIDE [Suspect]
     Indication: TYPE 2 DIABETES MELLITUS
  7. MELOXICAM [Suspect]
     Indication: PRODUCT USED FOR UNKNOWN INDICATION
  8. IRBESARTAN [Suspect]
     Indication: HYPERTENSION

REACTIONS (10)
  - Diarrhoea [Unknown]
  - Dehydration [Unknown]
  - Renal failure acute [Unknown]
  - Lactic acidosis [Recovered/Resolved]
  - Change of bowel habit [None]
  - Large intestine polyp [None]
  - Blood sodium decreased [None]
  - Blood pressure decreased [None]
  - Continuous haemodiafiltration [None]
  - Hypoperfusion [None]
